FAERS Safety Report 13601004 (Version 1)
Quarter: 2017Q2

REPORT INFORMATION
  Report Type: Spontaneous
  Country: US (occurrence: US)
  Receive Date: 20170601
  Receipt Date: 20170601
  Transmission Date: 20170830
  Serious: Yes (Other)
  Sender: FDA-Public Use
  Company Number: None

PATIENT
  Age: 43 Year
  Sex: Female
  Weight: 68.4 kg

DRUGS (3)
  1. ALBUTEROL. [Concomitant]
     Active Substance: ALBUTEROL
  2. ALAZOPRAM [Concomitant]
  3. BENZONATATE. [Suspect]
     Active Substance: BENZONATATE
     Indication: COUGH
     Dosage: ?          QUANTITY:1 CAPSULE(S);?
     Route: 048
     Dates: start: 20170531

REACTIONS (7)
  - Mental disorder [None]
  - Hallucination [None]
  - Restlessness [None]
  - Retching [None]
  - Panic attack [None]
  - Fear of death [None]
  - Crying [None]

NARRATIVE: CASE EVENT DATE: 20170531
